FAERS Safety Report 5453928-8 (Version None)
Quarter: 2007Q3

REPORT INFORMATION
  Report Type: 
  Country: None (occurrence: None)
  Receive Date: 20070917
  Receipt Date: 20070907
  Transmission Date: 20080115
  Serious: Yes (Hospitalization)
  Sender: FDA-Public Use
  Company Number: SV-ROCHE-516634

PATIENT
  Age: 75 Year
  Sex: Female

DRUGS (1)
  1. BONIVA [Suspect]
     Indication: OSTEOPOROSIS
     Route: 048
     Dates: start: 20070310

REACTIONS (3)
  - DENGUE FEVER [None]
  - INFECTION PARASITIC [None]
  - TYPHOID FEVER [None]
